FAERS Safety Report 17191225 (Version 3)
Quarter: 2020Q2

REPORT INFORMATION
  Report Type: Spontaneous
  Country: US (occurrence: US)
  Receive Date: 20191223
  Receipt Date: 20200427
  Transmission Date: 20200713
  Serious: Yes (Hospitalization, Other)
  Sender: FDA-Public Use
  Company Number: US-SEBELA IRELAND LIMITED-2019SEB00249

PATIENT
  Age: 58 Year
  Sex: Female
  Weight: 95.24 kg

DRUGS (8)
  1. ZOSYN [Suspect]
     Active Substance: PIPERACILLIN SODIUM\TAZOBACTAM SODIUM
     Dosage: UNK
     Dates: start: 201101
  2. IMURAN [Suspect]
     Active Substance: AZATHIOPRINE
     Dosage: UNK, 1X/DAY
     Route: 048
  3. VITAMIN C [Concomitant]
     Active Substance: ASCORBIC ACID
  4. VITAMIN D [Concomitant]
     Active Substance: VITAMIN D NOS
  5. IMURAN [Suspect]
     Active Substance: AZATHIOPRINE
     Indication: COLITIS ULCERATIVE
     Dosage: UNK, 1X/DAY
     Route: 048
     Dates: start: 2008
  6. IMURAN [Suspect]
     Active Substance: AZATHIOPRINE
     Dosage: UNK, 1X/DAY
     Route: 048
     Dates: end: 201101
  7. VITAMIN E [Concomitant]
     Active Substance: .ALPHA.-TOCOPHEROL
  8. CALCIUM [Concomitant]
     Active Substance: CALCIUM

REACTIONS (14)
  - Cytomegalovirus colitis [Recovered/Resolved]
  - Pancytopenia [Recovered/Resolved]
  - Feeling abnormal [Recovered/Resolved]
  - Hepatic cyst [Recovered/Resolved]
  - Off label use [Recovered/Resolved]
  - Proctitis ulcerative [Recovered/Resolved]
  - Zinc deficiency [Recovered/Resolved]
  - Folate deficiency [Recovered/Resolved]
  - Influenza [Unknown]
  - Pyrexia [Recovered/Resolved]
  - Gallbladder disorder [Recovered/Resolved]
  - Bronchitis [Unknown]
  - White blood cell count decreased [Recovered/Resolved]
  - Drug hypersensitivity [Not Recovered/Not Resolved]

NARRATIVE: CASE EVENT DATE: 2008
